FAERS Safety Report 10077574 (Version 2)
Quarter: 2014Q2

REPORT INFORMATION
  Report Type: Spontaneous
  Country: US (occurrence: US)
  Receive Date: 20140414
  Receipt Date: 20140414
  Transmission Date: 20141212
  Serious: No
  Sender: FDA-Public Use
  Company Number: US-BANPHARM-20131859

PATIENT
  Age: 56 Year
  Sex: Male

DRUGS (2)
  1. ALEVE LIQUID GELS 220 MG [Suspect]
     Indication: BACK PAIN
     Dosage: 3 DF, QD,
     Route: 048
     Dates: start: 201302
  2. ALEVE TABLETS [Suspect]
     Indication: BACK PAIN
     Dosage: 3 DF, PRN,
     Route: 048
     Dates: start: 201302

REACTIONS (3)
  - Hypoaesthesia [Not Recovered/Not Resolved]
  - Incorrect drug administration duration [Unknown]
  - Incorrect dose administered [Unknown]
